FAERS Safety Report 7366064-0 (Version None)
Quarter: 2011Q1

REPORT INFORMATION
  Report Type: 
  Country: None (occurrence: None)
  Receive Date: 20110322
  Receipt Date: 20110311
  Transmission Date: 20110831
  Serious: Yes (Other)
  Sender: FDA-Public Use
  Company Number: IE-MEDIMMUNE-MEDI-0012920

PATIENT
  Sex: Male

DRUGS (4)
  1. FERROUS SULFATE TAB [Concomitant]
  2. SYNAGIS [Suspect]
     Route: 030
     Dates: start: 20110120, end: 20110120
  3. GAVISCON [Concomitant]
  4. KAPSOVIT [Concomitant]

REACTIONS (1)
  - BRONCHIOLITIS [None]
